FAERS Safety Report 10258330 (Version 6)
Quarter: 2015Q1

REPORT INFORMATION
  Report Type: Spontaneous
  Country: US (occurrence: US)
  Receive Date: 20140625
  Receipt Date: 20150312
  Transmission Date: 20150720
  Serious: Yes (Life-Threatening, Hospitalization, Congenital Anomaly, Other)
  Sender: FDA-Public Use
  Company Number: US-ELI_LILLY_AND_COMPANY-US201406008310

PATIENT
  Age: 6 Year
  Sex: Female

DRUGS (1)
  1. PROZAC [Suspect]
     Active Substance: FLUOXETINE HYDROCHLORIDE
     Indication: PRODUCT USED FOR UNKNOWN INDICATION
     Dosage: UNK UNK, UNKNOWN
     Route: 064
     Dates: start: 199802

REACTIONS (11)
  - Cough [Unknown]
  - Haemoglobin increased [Recovered/Resolved]
  - Hypoplastic left heart syndrome [Unknown]
  - Dyspnoea [Unknown]
  - Neonatal respiratory distress syndrome [Recovered/Resolved]
  - Foetal exposure during pregnancy [Recovered/Resolved]
  - White blood cell count increased [Unknown]
  - Seizure [Unknown]
  - Pleural effusion [Recovered/Resolved]
  - Cyanosis [Unknown]
  - Wheezing [Unknown]

NARRATIVE: CASE EVENT DATE: 20000305
